FAERS Safety Report 20131629 (Version 1)
Quarter: 2021Q4

REPORT INFORMATION
  Report Type: Other
  Country: AU (occurrence: AU)
  Receive Date: 20211130
  Receipt Date: 20211130
  Transmission Date: 20220303
  Serious: Yes (Other)
  Sender: FDA-Public Use
  Company Number: None

PATIENT

DRUGS (9)
  1. OMNIPAQUE [Suspect]
     Active Substance: IOHEXOL
     Indication: Computerised tomogram
     Dosage: UNK UNK, SINGLE
     Route: 065
     Dates: start: 20180508, end: 20180508
  2. OMNIPAQUE [Suspect]
     Active Substance: IOHEXOL
     Indication: Blood lactic acid increased
  3. ASPIRIN [Concomitant]
     Active Substance: ASPIRIN
  4. DESVENLAFAXINE [Concomitant]
     Active Substance: DESVENLAFAXINE
  5. LANTUS [Concomitant]
     Active Substance: INSULIN GLARGINE
  6. METFORMIN [Concomitant]
     Active Substance: METFORMIN HYDROCHLORIDE
  7. OMEPRAZOLE [Concomitant]
     Active Substance: OMEPRAZOLE
  8. PREGABALIN [Concomitant]
     Active Substance: PREGABALIN
     Dosage: UNK
  9. SITAGLIPTIN [Concomitant]
     Active Substance: SITAGLIPTIN

REACTIONS (2)
  - Dysphonia [Unknown]
  - Stridor [Unknown]

NARRATIVE: CASE EVENT DATE: 20180508
